FAERS Safety Report 7323496-4 (Version None)
Quarter: 2011Q1

REPORT INFORMATION
  Report Type: 
  Country: None (occurrence: None)
  Receive Date: 20110301
  Receipt Date: 20110216
  Transmission Date: 20110831
  Serious: Yes (Other)
  Sender: FDA-Public Use
  Company Number: PHHY2010DE81006

PATIENT
  Sex: Male

DRUGS (2)
  1. AFINITOR [Suspect]
     Dosage: 10 MG PER DAY
     Route: 048
     Dates: start: 20101001
  2. AFINITOR [Suspect]
     Dosage: UNK, FOR 3 MONTHS
     Route: 048
     Dates: start: 20090101

REACTIONS (1)
  - METASTASES TO BONE [None]
